FAERS Safety Report 4689264-7 (Version None)
Quarter: 2005Q2

REPORT INFORMATION
  Report Type: 
  Country: None (occurrence: None)
  Receive Date: 20050613
  Receipt Date: 20050310
  Transmission Date: 20051028
  Serious: Yes (Death)
  Sender: FDA-Public Use
  Company Number: US-MERCK-0503USA02083

PATIENT
  Age: 58 Year
  Sex: Male
  Weight: 84 kg

DRUGS (9)
  1. CARTIA (DILTIAZEM HYDROCHLORIDE) [Concomitant]
     Indication: SPINAL COLUMN STENOSIS
     Route: 048
     Dates: start: 20020101, end: 20040323
  2. CARTIA (DILTIAZEM HYDROCHLORIDE) [Concomitant]
     Indication: OSTEOARTHRITIS
     Route: 048
     Dates: start: 20020101, end: 20040323
  3. ASPIRIN [Concomitant]
     Route: 065
  4. LORAZEPAM [Concomitant]
     Route: 065
  5. VIAGRA [Concomitant]
     Route: 065
  6. TOPROL-XL [Concomitant]
     Route: 048
  7. LEVITRA [Concomitant]
     Route: 065
  8. VIOXX [Suspect]
     Indication: SPINAL COLUMN STENOSIS
     Route: 048
     Dates: start: 20020101, end: 20040323
  9. VIOXX [Suspect]
     Indication: OSTEOARTHRITIS
     Route: 048
     Dates: start: 20020101, end: 20040323

REACTIONS (3)
  - ADVERSE EVENT [None]
  - CORONARY ARTERY DISEASE [None]
  - MYOCARDIAL INFARCTION [None]
